FAERS Safety Report 5713807-5 (Version None)
Quarter: 2008Q2

REPORT INFORMATION
  Report Type: 
  Country: None (occurrence: None)
  Receive Date: 20080423
  Receipt Date: 20080410
  Transmission Date: 20081010
  Serious: Yes (Other)
  Sender: FDA-Public Use
  Company Number: IL-RANBAXY-2008RR-14366

PATIENT

DRUGS (2)
  1. HYDROCHOLROTHIAZIDE [Suspect]
     Indication: HYPERTENSION
     Dosage: 25 MG, QD
  2. CALCIUM CARBONATE [Concomitant]
     Dosage: 1200 MG, QD

REACTIONS (1)
  - LIVER INJURY [None]
